FAERS Safety Report 8809143 (Version 2)
Quarter: 2012Q4

REPORT INFORMATION
  Report Type: 
  Country: GB (occurrence: GB)
  Receive Date: 20120926
  Receipt Date: 20121109
  Transmission Date: 20130627
  Serious: Yes (Other)
  Sender: FDA-Public Use
  Company Number: GB-GENZYME-MOZO-1000749

PATIENT
  Age: 63 Year
  Sex: Male
  Weight: 87.4 kg

DRUGS (21)
  1. MOZOBIL [Suspect]
     Indication: ACUTE MYELOID LEUKAEMIA
     Dosage: 240 mcg/kg, dosage interval:1 day
     Route: 058
     Dates: start: 20111202, end: 20111206
  2. EVOLTRA [Suspect]
     Indication: ACUTE MYELOID LEUKAEMIA
     Dosage: 20 mg/m2, dosage interval:1 day
     Route: 042
     Dates: start: 20111202, end: 20111206
  3. DAUNORUBICIN HYDROCHLORIDE [Suspect]
     Indication: ACUTE MYELOID LEUKAEMIA
     Dosage: 50 mg/m2, dosage interval:1 day
     Route: 042
     Dates: start: 20111202, end: 20111206
  4. METOCLOPRAMIDE [Concomitant]
     Indication: ANTIEMETIC SUPPORTIVE CARE
     Dosage: 10 mg, tid (intravenously or orally)
     Dates: start: 20120118
  5. LORAZEPAM [Concomitant]
     Indication: SEDATIVE THERAPY
     Dosage: 1 mg, qd
     Route: 048
     Dates: start: 20120118
  6. PAROXETINE [Concomitant]
     Indication: ANTIDEPRESSANT THERAPY
     Dosage: 50 mg, qd
     Route: 048
     Dates: start: 20120119
  7. ACICLOVIR [Concomitant]
     Indication: ANTIVIRAL TREATMENT
     Dosage: 400 mg, bid
     Route: 048
     Dates: start: 20120118
  8. PARACETAMOL [Concomitant]
     Indication: PAIN
     Dosage: 1g, qid
     Route: 048
     Dates: start: 20120118
  9. TRAMADOL [Concomitant]
     Indication: PAIN
     Dosage: 50-100 mg, qid
     Route: 048
     Dates: start: 20120118
  10. OMEPRAZOLE [Concomitant]
     Indication: SECRETION DISCHARGE
     Dosage: 40 mg, qd
     Route: 048
     Dates: start: 20120118
  11. TRANEXAMIC ACID [Concomitant]
     Indication: PRODUCT USED FOR UNKNOWN INDICATION
     Dosage: 1 g, tid
     Route: 048
     Dates: start: 20120118, end: 20120120
  12. ONDANSETRON [Concomitant]
     Indication: ANTIEMETIC SUPPORTIVE CARE
     Dosage: 8 mg, bid (intravenously or orally)
     Dates: start: 20120118, end: 20120123
  13. CORSODYL [Concomitant]
     Indication: DENTAL DISORDER PROPHYLAXIS
     Dosage: 4 times daily
     Route: 048
     Dates: start: 20120118
  14. ZOPICLON [Concomitant]
     Indication: SLEEP DISORDER
     Dosage: 3.75 mg, qd
     Route: 048
     Dates: start: 20120118
  15. IMODIUM [Concomitant]
     Indication: DIARRHOEA
     Dosage: prn
     Route: 048
     Dates: start: 20120119, end: 20120120
  16. NOZINAN [Concomitant]
     Indication: PSYCHOTIC DISORDER
     Dosage: prn
     Route: 048
     Dates: start: 20120120, end: 20120122
  17. HYDROCORTISONE [Concomitant]
     Indication: STEROID THERAPY
     Dosage: 100 mg, prn
     Route: 042
     Dates: start: 20120127, end: 20120129
  18. PIRITION [Concomitant]
     Indication: PRODUCT USED FOR UNKNOWN INDICATION
     Dosage: 10 mg, prn
     Route: 042
     Dates: start: 20120127, end: 20120129
  19. ITRACONAZOLE [Concomitant]
     Indication: ANTIFUNGAL TREATMENT
     Dosage: 200 mg, bid
     Route: 048
     Dates: start: 20120126
  20. COTRIMOXAZOLE [Concomitant]
     Indication: ANTIBIOTIC THERAPY
     Dosage: 480 mg, qd
     Route: 048
     Dates: start: 20120118
  21. SCANDI SHAKE [Concomitant]
     Indication: MEDICAL DIET
     Dosage: 85 g, bid
     Route: 048
     Dates: start: 20120118, end: 20120129

REACTIONS (1)
  - Pancytopenia [Not Recovered/Not Resolved]
